FAERS Safety Report 23599265 (Version 8)
Quarter: 2024Q3

REPORT INFORMATION
  Report Type: Spontaneous
  Country: CA (occurrence: CA)
  Receive Date: 20240306
  Receipt Date: 20240802
  Transmission Date: 20241017
  Serious: Yes (Other)
  Sender: CELLTRION
  Company Number: CA-CELLTRION INC.-2022CA019463

PATIENT

DRUGS (19)
  1. INFLECTRA [Suspect]
     Active Substance: INFLIXIMAB-DYYB
     Indication: Crohn^s disease
     Dosage: 5 MG/KG WEEK 0, 2 AND 6, THEN EVERY 8 WEEKS - ROUNDED TO NEAREST VIAL
     Route: 042
     Dates: start: 20221025
  2. INFLECTRA [Suspect]
     Active Substance: INFLIXIMAB-DYYB
     Dosage: 5 MG/KG WEEK 0, 2 AND 6, THEN EVERY 8 WEEKS - ROUNDED TO NEAREST VIAL
     Route: 042
     Dates: start: 20221109, end: 20221109
  3. INFLECTRA [Suspect]
     Active Substance: INFLIXIMAB-DYYB
     Dosage: 5 MG/KG WEEK 0, 2 AND 6, THEN EVERY 8 WEEKS - ROUNDED TO NEAREST VIAL
     Route: 042
     Dates: start: 20221206
  4. INFLECTRA [Suspect]
     Active Substance: INFLIXIMAB-DYYB
     Dosage: 5 MG/KG, WEEK 0, 2 AND 6, THEN EVERY 8 WEEKS - ROUNDED TO NEAREST VIAL
     Route: 042
     Dates: start: 20230131
  5. INFLECTRA [Suspect]
     Active Substance: INFLIXIMAB-DYYB
     Dosage: 5 MG/KG (300 MG), EVERY 8 WEEKS
     Route: 042
     Dates: start: 20230328, end: 20230328
  6. INFLECTRA [Suspect]
     Active Substance: INFLIXIMAB-DYYB
     Dosage: 5 MG/KG (300 MG), EVERY 8 WEEKS
     Route: 042
     Dates: start: 20230523
  7. INFLECTRA [Suspect]
     Active Substance: INFLIXIMAB-DYYB
     Dosage: 5 MG/KG, WEEK 0, 2 AND 6, THEN EVERY 8 WEEKS - ROUNDED TO NEAREST VIAL
     Route: 042
     Dates: start: 20230912
  8. INFLECTRA [Suspect]
     Active Substance: INFLIXIMAB-DYYB
     Dosage: 5 MG/KG (300 MG) EVERY 8 WEEKS,  ROUNDED TO NEAREST VIAL
     Route: 042
     Dates: start: 20231107
  9. INFLECTRA [Suspect]
     Active Substance: INFLIXIMAB-DYYB
     Dosage: 5 MG/KG, (340MG AFTER 4 WEEKS AND 2 DAYS) EVERY 4 WEEK
     Route: 042
     Dates: start: 20231207
  10. INFLECTRA [Suspect]
     Active Substance: INFLIXIMAB-DYYB
     Dosage: 300 MG (SUPPOSED TO RECEIVE 5 MG/KG ROUNDED TO THE NEAREST 100.)
     Route: 042
     Dates: start: 20240102
  11. INFLECTRA [Suspect]
     Active Substance: INFLIXIMAB-DYYB
     Dosage: 300 MG (SUPPOSED TO RECEIVE 5 MG/KG ROUNDED TO THE NEAREST 100.)
     Route: 042
     Dates: start: 20240130
  12. INFLECTRA [Suspect]
     Active Substance: INFLIXIMAB-DYYB
     Dosage: 5 MG/KG (300 MG), EVERY 4 WEEKS, (ROUNDED TO THE NEAREST 100.)
     Route: 042
     Dates: start: 20240228
  13. INFLECTRA [Suspect]
     Active Substance: INFLIXIMAB-DYYB
     Dosage: 5 MG/KG (300 MG) EVERY 4 WEEKS, COMPLETION OF PREVIOUS DOSE
     Route: 042
     Dates: start: 20240305
  14. INFLECTRA [Suspect]
     Active Substance: INFLIXIMAB-DYYB
     Dosage: 10 MG/KG (700MG) AFTER 3 WEEKS AND 6 DAYS, PRESCRIBED EVERY 4 WEEKS
     Route: 042
     Dates: start: 20240430
  15. INFLECTRA [Suspect]
     Active Substance: INFLIXIMAB-DYYB
     Dosage: 600 MG, EVERY 4 WEEKS
     Route: 042
     Dates: start: 20240530
  16. INFLECTRA [Suspect]
     Active Substance: INFLIXIMAB-DYYB
     Dosage: 10 MG/KG, ROUNDED TO THE NEAREST HUNDRED
     Route: 042
     Dates: start: 20240627
  17. INFLECTRA [Suspect]
     Active Substance: INFLIXIMAB-DYYB
     Dosage: 600 MG, AFTER 3 WEEKS AND 6 DAYS (10 MG/KG, ROUNDED TO THE NEAREST HUNDRED)
     Route: 042
     Dates: start: 20240725
  18. CORTISONE [Concomitant]
     Active Substance: CORTISONE
     Dosage: UNK
  19. PREDNISONE [Concomitant]
     Active Substance: PREDNISONE
     Dosage: 1 DF
     Dates: start: 20220812

REACTIONS (12)
  - Condition aggravated [Recovering/Resolving]
  - Therapeutic product effect decreased [Unknown]
  - Fatigue [Unknown]
  - Hypotension [Recovered/Resolved]
  - Dizziness [Recovered/Resolved]
  - Feeling hot [Recovered/Resolved]
  - Off label use [Unknown]
  - Off label use [Unknown]
  - Intentional product use issue [Unknown]
  - Incorrect dose administered [Unknown]
  - Inappropriate schedule of product administration [Unknown]
  - Maternal exposure during pregnancy [Unknown]

NARRATIVE: CASE EVENT DATE: 20220101
